FAERS Safety Report 15681365 (Version 1)
Quarter: 2018Q4

REPORT INFORMATION
  Report Type: Spontaneous
  Country: FR (occurrence: FR)
  Receive Date: 20181203
  Receipt Date: 20181203
  Transmission Date: 20190205
  Serious: Yes (Hospitalization)
  Sender: FDA-Public Use
  Company Number: FR-ELI_LILLY_AND_COMPANY-FR201811013196

PATIENT
  Age: 65 Year
  Sex: Male
  Weight: 67 kg

DRUGS (4)
  1. POLARAMINE [Concomitant]
     Active Substance: DEXCHLORPHENIRAMINE MALEATE
     Indication: PRODUCT USED FOR UNKNOWN INDICATION
     Dosage: 5 MG, UNK
     Route: 042
  2. HYDROCORTISONE. [Concomitant]
     Active Substance: HYDROCORTISONE
     Indication: PRODUCT USED FOR UNKNOWN INDICATION
     Dosage: 100 MG, UNK
     Route: 042
  3. CHLORURE DE SODIUM [Concomitant]
     Active Substance: SODIUM CHLORIDE
     Indication: PRODUCT USED FOR UNKNOWN INDICATION
     Dosage: 500 ML, UNK
     Route: 042
  4. ERBITUX [Suspect]
     Active Substance: CETUXIMAB
     Indication: MALIGNANT PALATE NEOPLASM
     Dosage: 700 MG, UNKNOWN
     Route: 042
     Dates: start: 20181109, end: 20181109

REACTIONS (4)
  - Hypersensitivity [Recovered/Resolved]
  - Generalised erythema [Recovered/Resolved]
  - Malaise [Recovered/Resolved]
  - Hypotension [Recovered/Resolved]

NARRATIVE: CASE EVENT DATE: 20181109
